FAERS Safety Report 25761899 (Version 3)
Quarter: 2025Q4

REPORT INFORMATION
  Report Type: Spontaneous
  Country: JP (occurrence: JP)
  Receive Date: 20250904
  Receipt Date: 20251014
  Transmission Date: 20260117
  Serious: Yes (Hospitalization)
  Sender: MERCK SHARP & DOHME LLC
  Company Number: JP-009507513-2324305

PATIENT
  Age: 57 Year
  Sex: Female

DRUGS (4)
  1. KEYTRUDA [Suspect]
     Active Substance: PEMBROLIZUMAB
     Indication: Endometrial adenocarcinoma
     Route: 058
     Dates: start: 20250521, end: 20250611
  2. CARBOPLATIN [Concomitant]
     Active Substance: CARBOPLATIN
     Indication: Endometrial adenocarcinoma
     Route: 065
     Dates: start: 20250521, end: 2025
  3. PACLITAXEL [Suspect]
     Active Substance: PACLITAXEL
     Indication: Endometrial adenocarcinoma
     Route: 065
     Dates: start: 20250521, end: 20250521
  4. DOCETAXEL [Suspect]
     Active Substance: DOCETAXEL
     Indication: Endometrial adenocarcinoma
     Route: 065
     Dates: start: 20250611, end: 20250702

REACTIONS (4)
  - Myasthenia gravis [Recovered/Resolved]
  - Drug hypersensitivity [Recovered/Resolved]
  - Varicella [Unknown]
  - Therapy partial responder [Unknown]

NARRATIVE: CASE EVENT DATE: 20250101
